FAERS Safety Report 9087830 (Version 1)
Quarter: 2013Q1

REPORT INFORMATION
  Report Type: Spontaneous
  Country: FR (occurrence: FR)
  Receive Date: 20130201
  Receipt Date: 20130201
  Transmission Date: 20140127
  Serious: Yes (Death, Other)
  Sender: FDA-Public Use
  Company Number: FR-GENZYME-MOZO-1000807

PATIENT
  Age: 62 None
  Sex: Female

DRUGS (18)
  1. MOZOBIL [Suspect]
     Indication: HAEMATOPOIETIC STEM CELL MOBILISATION
     Dosage: UNK
     Route: 058
     Dates: start: 20121004, end: 20121004
  2. CYTARABINE [Suspect]
     Indication: ANGIOIMMUNOBLASTIC T-CELL LYMPHOMA
     Dosage: UNK
     Route: 042
     Dates: start: 201208
  3. CYTARABINE [Suspect]
     Dosage: UNK
     Route: 065
     Dates: start: 20121008, end: 201210
  4. DEXAMETHASONE [Suspect]
     Indication: ANGIOIMMUNOBLASTIC T-CELL LYMPHOMA
     Dosage: UNK
     Route: 048
  5. DEXAMETHASONE [Suspect]
     Dosage: UNK
     Route: 065
     Dates: start: 20121008, end: 201210
  6. OXALIPLATIN [Suspect]
     Indication: ANGIOIMMUNOBLASTIC T-CELL LYMPHOMA
     Dosage: UNK
     Route: 042
     Dates: start: 201208
  7. OXALIPLATIN [Suspect]
     Dosage: UNK
     Route: 065
     Dates: start: 20121008, end: 201210
  8. LENOGRASTIM [Suspect]
     Indication: PRODUCT USED FOR UNKNOWN INDICATION
     Dosage: UNK
     Route: 058
     Dates: start: 201210
  9. ZOPHREN [Concomitant]
     Indication: PROPHYLAXIS
     Dosage: UNK
     Route: 048
  10. AUGMENTIN BD [Concomitant]
     Indication: PRODUCT USED FOR UNKNOWN INDICATION
     Dosage: UNK
     Route: 048
     Dates: start: 20120928
  11. OFLOXACIN [Concomitant]
     Indication: PRODUCT USED FOR UNKNOWN INDICATION
     Dosage: UNK
     Route: 048
     Dates: start: 20120928
  12. BACTRIM [Concomitant]
     Indication: PRODUCT USED FOR UNKNOWN INDICATION
     Dosage: UNK
     Route: 048
  13. ZELITREX [Concomitant]
     Indication: PRODUCT USED FOR UNKNOWN INDICATION
     Dosage: UNK
     Route: 048
  14. EPREX [Concomitant]
     Indication: PRODUCT USED FOR UNKNOWN INDICATION
     Dosage: UNK
     Route: 058
  15. DAFLON [Concomitant]
     Indication: PRODUCT USED FOR UNKNOWN INDICATION
     Dosage: UNK
     Route: 048
  16. INEXIUM [Concomitant]
     Indication: PRODUCT USED FOR UNKNOWN INDICATION
     Dosage: UNK
     Route: 048
  17. ACUPAN [Concomitant]
     Indication: PAIN
     Dosage: UNK
     Route: 030
  18. ATARAX [Concomitant]
     Indication: PRODUCT USED FOR UNKNOWN INDICATION
     Dosage: UNK
     Route: 048

REACTIONS (5)
  - Ascites [Fatal]
  - Subileus [Fatal]
  - Multi-organ failure [Fatal]
  - Coma [Fatal]
  - Platelet count decreased [Unknown]
